FAERS Safety Report 6389976-3 (Version None)
Quarter: 2009Q4

REPORT INFORMATION
  Report Type: 
  Country: None (occurrence: None)
  Receive Date: 20091006
  Receipt Date: 20090721
  Transmission Date: 20100525
  Serious: No
  Sender: FDA-Public Use
  Company Number: US-BRISTOL-MYERS SQUIBB COMPANY-14710198

PATIENT
  Age: 83 Year
  Sex: Female
  Weight: 65 kg

DRUGS (10)
  1. AVAPRO [Suspect]
     Indication: HYPERTENSION
     Route: 048
  2. SYNTHROID [Concomitant]
  3. DILTIAZEM [Concomitant]
  4. VITAMINS + MINERALS [Concomitant]
  5. VITAMIN D [Concomitant]
  6. LOVAZA [Concomitant]
  7. PHOSPHATIDYL SERINE [Concomitant]
  8. ASTRAGALUS [Concomitant]
  9. UBIDECARENONE [Concomitant]
     Dosage: COQ10
  10. ETHYL ICOSAPENTATE [Concomitant]

REACTIONS (3)
  - COUGH [None]
  - FATIGUE [None]
  - NASAL CONGESTION [None]
